FAERS Safety Report 5758953-5 (Version None)
Quarter: 2008Q2

REPORT INFORMATION
  Report Type: 
  Country: None (occurrence: None)
  Receive Date: 20080604
  Receipt Date: 20080527
  Transmission Date: 20081010
  Serious: Yes (Hospitalization)
  Sender: FDA-Public Use
  Company Number: JP-ASTRAZENECA-2008AP04136

PATIENT
  Age: 24771 Day
  Sex: Female
  Weight: 52 kg

DRUGS (5)
  1. OMEPRAL TABLETS [Suspect]
     Indication: HELICOBACTER INFECTION
     Dosage: DOSE UNKNOWN
     Route: 048
     Dates: start: 20080406, end: 20080406
  2. SAWACILLIN [Suspect]
     Indication: HELICOBACTER INFECTION
     Dosage: DOSE UNKNOWN
     Route: 048
     Dates: start: 20080406, end: 20080406
  3. CLARITHROMYCIN [Suspect]
     Indication: HELICOBACTER INFECTION
     Dosage: DOSE UNKNOWN
     Route: 048
     Dates: start: 20080406, end: 20080406
  4. NIZATIDINE [Concomitant]
     Indication: CONSTIPATION
     Dosage: DOSE UNKNOWN
     Route: 048
     Dates: start: 20080203, end: 20080406
  5. MUCOSTA [Concomitant]
     Indication: GASTRITIS
     Dosage: DOSE UNKNOWN
     Route: 048
     Dates: start: 20080203, end: 20080406

REACTIONS (1)
  - DRUG ERUPTION [None]
